FAERS Safety Report 13234825 (Version 1)
Quarter: 2017Q1

REPORT INFORMATION
  Report Type: Spontaneous
  Country: US (occurrence: US)
  Receive Date: 20170215
  Receipt Date: 20170215
  Transmission Date: 20170428
  Serious: Yes (Disabling)
  Sender: FDA-Public Use
  Company Number: None

PATIENT
  Age: 40 Year
  Sex: Female
  Weight: 76.5 kg

DRUGS (2)
  1. LEVOFLAXIN 750 MG TABLETS [Suspect]
     Active Substance: LEVOFLOXACIN
     Indication: ATYPICAL PNEUMONIA
     Dosage: ?          QUANTITY:7 TABLET(S);?
     Route: 048
     Dates: start: 20161227, end: 20170102
  2. PROBIOTIC [Concomitant]
     Active Substance: PROBIOTICS NOS

REACTIONS (8)
  - Peripheral swelling [None]
  - Pain in extremity [None]
  - Muscular weakness [None]
  - Musculoskeletal disorder [None]
  - Gait disturbance [None]
  - Stomatitis [None]
  - Arthralgia [None]
  - Neuralgia [None]

NARRATIVE: CASE EVENT DATE: 20161227
